FAERS Safety Report 22018620 (Version 2)
Quarter: 2023Q2

REPORT INFORMATION
  Report Type: Spontaneous
  Country: DE (occurrence: DE)
  Receive Date: 20230222
  Receipt Date: 20230421
  Transmission Date: 20230721
  Serious: No
  Sender: FDA-Public Use
  Company Number: DE-SAMSUNG BIOEPIS-SB-2023-04145

PATIENT
  Age: 37 Year
  Sex: Male

DRUGS (9)
  1. AZATHIOPRINE [Suspect]
     Active Substance: AZATHIOPRINE
     Indication: Chorioretinitis
     Dosage: 150 MG, QD
     Route: 065
  2. PREDNISOLONE [Suspect]
     Active Substance: PREDNISOLONE
     Indication: Chorioretinitis
     Dosage: 1-2 MG/KG (INITIAL DOSE AT PRIMARY VISIT)
     Route: 065
  3. PREDNISOLONE [Suspect]
     Active Substance: PREDNISOLONE
     Dosage: UNK (DOSE TAPERED TO LESS THAN OR EQUAL TO 10 MG EQUIVALENT DAILY)
     Route: 065
  4. PREDNISOLONE [Suspect]
     Active Substance: PREDNISOLONE
     Dosage: 30 MG, QD
     Route: 065
  5. PREDNISOLONE [Suspect]
     Active Substance: PREDNISOLONE
     Dosage: 1 MG, QD
     Route: 065
  6. ISONIAZID [Concomitant]
     Active Substance: ISONIAZID
     Indication: Antibiotic prophylaxis
     Dosage: 300 MG, QD (FOR AT LEAST 6 MONTHS)
     Route: 065
  7. OZURDEX [Concomitant]
     Active Substance: DEXAMETHASONE
     Indication: Cystoid macular oedema
     Dosage: UNK (OD)
     Route: 031
  8. BEVACIZUMAB [Concomitant]
     Active Substance: BEVACIZUMAB
     Indication: Retinal occlusive vasculitis
     Dosage: UNK (OD 2X)
     Route: 031
  9. BEVACIZUMAB [Concomitant]
     Active Substance: BEVACIZUMAB
     Dosage: UNK (OS 4X)
     Route: 031

REACTIONS (3)
  - Hepatic enzyme increased [Unknown]
  - Drug ineffective [Unknown]
  - Product use in unapproved indication [Unknown]
